FAERS Safety Report 25191491 (Version 1)
Quarter: 2025Q2

REPORT INFORMATION
  Report Type: Spontaneous
  Country: US (occurrence: None)
  Receive Date: 20250412
  Receipt Date: 20250412
  Transmission Date: 20250716
  Serious: Yes (Other)
  Sender: FDA-CTU
  Company Number: None

PATIENT
  Age: 73 Year
  Sex: Female
  Weight: 83.25 kg

DRUGS (18)
  1. FARXIGA [Suspect]
     Active Substance: DAPAGLIFLOZIN PROPANEDIOL
     Indication: Blood cholesterol increased
     Dosage: OTHER QUANTITY : 1 TABLET(S);?FREQUENCY : DAILY;?
     Route: 048
     Dates: start: 20250201
  2. TERAZOSIN [Concomitant]
     Active Substance: TERAZOSIN HYDROCHLORIDE
  3. NIFEDIPINE [Concomitant]
     Active Substance: NIFEDIPINE
  4. BUMETANIDE [Concomitant]
     Active Substance: BUMETANIDE
  5. METOPROLOL [Concomitant]
     Active Substance: METOPROLOL
  6. HYDRALAZINE [Concomitant]
     Active Substance: HYDRALAZINE HYDROCHLORIDE
  7. ALLOPURINOL [Concomitant]
     Active Substance: ALLOPURINOL
  8. ACYCLOVIR [Concomitant]
     Active Substance: ACYCLOVIR
  9. VITAMINS [Concomitant]
     Active Substance: VITAMINS
  10. IRON [Concomitant]
     Active Substance: IRON
  11. VITAMIN D [Concomitant]
     Active Substance: VITAMIN D NOS
  12. B12 [Concomitant]
  13. HERBALS\TURMERIC [Concomitant]
     Active Substance: HERBALS\TURMERIC
  14. KRILL OIL [Concomitant]
     Active Substance: DIETARY SUPPLEMENT\KRILL OIL
  15. GABAPENTIN [Concomitant]
     Active Substance: GABAPENTIN
  16. FARXIGA [Concomitant]
     Active Substance: DAPAGLIFLOZIN PROPANEDIOL
  17. OMEPRAZOLE [Concomitant]
     Active Substance: OMEPRAZOLE
  18. Nexlrtol [Concomitant]

REACTIONS (4)
  - Alopecia [None]
  - Alopecia [None]
  - Alopecia [None]
  - Hair growth abnormal [None]

NARRATIVE: CASE EVENT DATE: 20250301
